FAERS Safety Report 6466113-8 (Version None)
Quarter: 2009Q4

REPORT INFORMATION
  Report Type: 
  Country: None (occurrence: None)
  Receive Date: 20091201
  Receipt Date: 20091201
  Transmission Date: 20100525
  Serious: Yes (Disabling)
  Sender: FDA-Public Use
  Company Number: None

PATIENT
  Age: 50 Year
  Sex: Female
  Weight: 56.6996 kg

DRUGS (2)
  1. AMBIEN CR [Suspect]
     Indication: INSOMNIA
     Dosage: 1 TABLET 12.5 MG EVERY NIGHT BY MOUTH
     Route: 048
  2. AMBIEN CR [Suspect]
     Indication: PAIN
     Dosage: 1 TABLET 12.5 MG EVERY NIGHT BY MOUTH
     Route: 048

REACTIONS (6)
  - ABNORMAL SLEEP-RELATED EVENT [None]
  - CONDITION AGGRAVATED [None]
  - INTERVERTEBRAL DISC DEGENERATION [None]
  - MULTIPLE SCLEROSIS [None]
  - SOMNAMBULISM [None]
  - SPINAL DISORDER [None]
